FAERS Safety Report 5038522-5 (Version None)
Quarter: 2006Q2

REPORT INFORMATION
  Report Type: 
  Country: None (occurrence: None)
  Receive Date: 20060629
  Receipt Date: 20060420
  Transmission Date: 20061013
  Serious: Yes (Hospitalization)
  Sender: FDA-Public Use
  Company Number: PHBS2006JP05901

PATIENT
  Age: 74 Year
  Sex: Male

DRUGS (5)
  1. DIOVAN [Suspect]
     Indication: HYPERTENSION
     Dosage: 40 MG, QD
     Route: 048
  2. ADALAT [Suspect]
     Dosage: 20 MG, BID
     Route: 048
     Dates: end: 20060420
  3. CILOSTAZOL [Suspect]
     Dosage: 200 MG, BID
     Route: 048
     Dates: end: 20060420
  4. MYSLEE [Concomitant]
     Dosage: 5 MG, UNK
     Route: 048
  5. SELOKEN [Concomitant]
     Dosage: 120 MG, QD
     Route: 048

REACTIONS (2)
  - ANGINA PECTORIS [None]
  - GASTROINTESTINAL HAEMORRHAGE [None]
